FAERS Safety Report 22645652 (Version 1)
Quarter: 2023Q2

REPORT INFORMATION
  Report Type: Spontaneous
  Country: US (occurrence: US)
  Receive Date: 20230627
  Receipt Date: 20230627
  Transmission Date: 20230722
  Serious: Yes (Other)
  Sender: FDA-Public Use
  Company Number: US-PFIZER INC-PV202300110301

PATIENT
  Age: 51 Year
  Sex: Male

DRUGS (3)
  1. TALZENNA [Suspect]
     Active Substance: TALAZOPARIB TOSYLATE
     Dosage: UNK (STARTED WITH TWO STARTER DOSES)
  2. TALZENNA [Suspect]
     Active Substance: TALAZOPARIB TOSYLATE
     Dosage: UNK (ANOTHER SHOT AFTER 2 WEEKS)
  3. TALZENNA [Suspect]
     Active Substance: TALAZOPARIB TOSYLATE
     Dosage: UNK, MONTHLY FOR 3 MONTHS

REACTIONS (2)
  - Hernia [Unknown]
  - Off label use [Unknown]
